FAERS Safety Report 4620478-8 (Version None)
Quarter: 2005Q1

REPORT INFORMATION
  Report Type: 
  Country: None (occurrence: None)
  Receive Date: 20050324
  Receipt Date: 20050311
  Transmission Date: 20050727
  Serious: Yes (Hospitalization)
  Sender: FDA-Public Use
  Company Number: 2005044368

PATIENT
  Age: 82 Year
  Sex: Male

DRUGS (8)
  1. ZITHROMAX [Suspect]
     Indication: ILL-DEFINED DISORDER
     Dosage: 500 MG (1 D), INTRAVENOUS
     Route: 042
     Dates: start: 20050216, end: 20050220
  2. TIFACOGIN (TIFACOGIN) [Suspect]
     Indication: PNEUMONIA
     Dosage: 1 D, INTRAVENOUS
     Route: 042
     Dates: start: 20050216, end: 20050220
  3. ACETAMINOPHEN [Concomitant]
  4. COMBIVENT [Concomitant]
  5. CEFTRIAXONE [Concomitant]
  6. DOCUSATE CALCIUM (DOCUSATE CALCIUM) [Concomitant]
  7. RANITIDINE [Concomitant]
  8. SIMVASTATIN [Concomitant]

REACTIONS (4)
  - ALANINE AMINOTRANSFERASE INCREASED [None]
  - ASPARTATE AMINOTRANSFERASE INCREASED [None]
  - BLOOD ALKALINE PHOSPHATASE INCREASED [None]
  - GALLBLADDER ENLARGEMENT [None]
